FAERS Safety Report 16463638 (Version 1)
Quarter: 2019Q2

REPORT INFORMATION
  Report Type: Spontaneous
  Country: CA (occurrence: CA)
  Receive Date: 20190621
  Receipt Date: 20190621
  Transmission Date: 20190711
  Serious: Yes (Hospitalization)
  Sender: FDA-Public Use
  Company Number: CA-TEVA-2019-CA-1065957

PATIENT
  Age: 56 Year
  Sex: Female

DRUGS (17)
  1. ESTROGENS [Concomitant]
     Active Substance: ESTROGENS
  2. PROGESTERONE. [Concomitant]
     Active Substance: PROGESTERONE
  3. LOXAPINE. [Concomitant]
     Active Substance: LOXAPINE
  4. HALOPERIDOL. [Concomitant]
     Active Substance: HALOPERIDOL
  5. FORMOTEROL FOR INHALATION [Concomitant]
     Active Substance: FORMOTEROL
  6. IRON [Concomitant]
     Active Substance: IRON
  7. OXYCODONE [Concomitant]
     Active Substance: OXYCODONE
  8. ACETAMINOPHEN. [Concomitant]
     Active Substance: ACETAMINOPHEN
  9. LEVOTHYROXINE. [Concomitant]
     Active Substance: LEVOTHYROXINE
  10. MAGNESIUM GLUCOHEPTONATE [Concomitant]
  11. PREDNISONE. [Concomitant]
     Active Substance: PREDNISONE
  12. VALPROIC ACID. [Suspect]
     Active Substance: VALPROIC ACID
     Indication: BIPOLAR DISORDER
     Dosage: 1000 MILLIGRAM DAILY;
     Route: 065
  13. MEROPENEM. [Concomitant]
     Active Substance: MEROPENEM
  14. PROCYCLIDINE HCL [Concomitant]
     Active Substance: PROCYCLIDINE HYDROCHLORIDE
  15. HUMIRA [Concomitant]
     Active Substance: ADALIMUMAB
  16. VANCOMYCIN [Concomitant]
     Active Substance: VANCOMYCIN
  17. ESOMEPRAZOLE. [Concomitant]
     Active Substance: ESOMEPRAZOLE MAGNESIUM

REACTIONS (2)
  - Carnitine deficiency [Unknown]
  - Hyperlactacidaemia [Unknown]
